FAERS Safety Report 10032853 (Version 1)
Quarter: 2014Q1

REPORT INFORMATION
  Report Type: Spontaneous
  Country: US (occurrence: US)
  Receive Date: 20140324
  Receipt Date: 20140324
  Transmission Date: 20141002
  Serious: No
  Sender: FDA-Public Use
  Company Number: US-SHIONOGI, INC-2013000369

PATIENT
  Sex: Female

DRUGS (2)
  1. OSPHENA [Suspect]
     Indication: LICHEN SCLEROSUS
     Dosage: UNK
     Dates: start: 2013
  2. OSPHENA [Suspect]
     Indication: OFF LABEL USE

REACTIONS (2)
  - Off label use [Unknown]
  - Therapeutic response unexpected [Unknown]
